FAERS Safety Report 6964072-2 (Version None)
Quarter: 2010Q3

REPORT INFORMATION
  Report Type: 
  Country: None (occurrence: None)
  Receive Date: 20100831
  Receipt Date: 20100820
  Transmission Date: 20110219
  Serious: Yes (Hospitalization)
  Sender: FDA-Public Use
  Company Number: 2010EU002435

PATIENT
  Age: 86 Year
  Sex: Male

DRUGS (9)
  1. PROTOPIC [Suspect]
     Indication: DERMATITIS ATOPIC
     Dosage: 0.1%, BID, TOPICAL
     Route: 061
     Dates: start: 20070509, end: 20070530
  2. PROTOPIC [Suspect]
     Indication: ECZEMA
     Dosage: 0.1%, BID, TOPICAL
     Route: 061
     Dates: start: 20070509, end: 20070530
  3. PROTOPIC [Suspect]
     Indication: VITILIGO
     Dosage: 0.1%, BID, TOPICAL
     Route: 061
     Dates: start: 20070509, end: 20070530
  4. PROTOPIC [Suspect]
     Indication: DERMATITIS ATOPIC
     Dosage: 0.1%, BID, TOPICAL
     Route: 061
     Dates: start: 20100303, end: 20100330
  5. PROTOPIC [Suspect]
     Indication: ECZEMA
     Dosage: 0.1%, BID, TOPICAL
     Route: 061
     Dates: start: 20100303, end: 20100330
  6. PROTOPIC [Suspect]
     Indication: VITILIGO
     Dosage: 0.1%, BID, TOPICAL
     Route: 061
     Dates: start: 20100303, end: 20100330
  7. PROTOPIC [Suspect]
     Indication: DERMATITIS ATOPIC
     Dosage: 0.1%, BID, TOPICAL
     Route: 061
     Dates: start: 20100713, end: 20100730
  8. PROTOPIC [Suspect]
     Indication: ECZEMA
     Dosage: 0.1%, BID, TOPICAL
     Route: 061
     Dates: start: 20100713, end: 20100730
  9. PROTOPIC [Suspect]
     Indication: VITILIGO
     Dosage: 0.1%, BID, TOPICAL
     Route: 061
     Dates: start: 20100713, end: 20100730

REACTIONS (5)
  - DERMATITIS ATOPIC [None]
  - LUNG DISORDER [None]
  - OFF LABEL USE [None]
  - PRURIGO [None]
  - VITILIGO [None]
